FAERS Safety Report 11556832 (Version 2)
Quarter: 2015Q4

REPORT INFORMATION
  Report Type: Spontaneous
  Country: MY (occurrence: MY)
  Receive Date: 20150925
  Receipt Date: 20151019
  Transmission Date: 20160304
  Serious: Yes (Death)
  Sender: FDA-Public Use
  Company Number: MY-B.I. PHARMACEUTICALS,INC./RIDGEFIELD-2015-BI-52042MD

PATIENT
  Age: 65 Year
  Sex: Female

DRUGS (12)
  1. MEROPENEM. [Concomitant]
     Active Substance: MEROPENEM
     Indication: SEPSIS
     Dosage: 3 G
     Route: 042
     Dates: start: 20150915
  2. GRANISETRON [Concomitant]
     Active Substance: GRANISETRON
     Indication: VOMITING
  3. LOPERAMIDE [Concomitant]
     Active Substance: LOPERAMIDE
     Indication: VOMITING
  4. GRANISETRON [Concomitant]
     Active Substance: GRANISETRON
     Indication: DIARRHOEA
     Route: 065
  5. TAZOCIN [Concomitant]
     Active Substance: PIPERACILLIN SODIUM\TAZOBACTAM SODIUM
     Indication: SEPSIS
     Dosage: 4.5 G
     Route: 042
     Dates: end: 20150915
  6. GILOTRIF [Suspect]
     Active Substance: AFATINIB
     Indication: PRODUCT USED FOR UNKNOWN INDICATION
     Route: 048
     Dates: start: 20150907, end: 20150913
  7. LOPERAMIDE [Concomitant]
     Active Substance: LOPERAMIDE
     Indication: DIARRHOEA
     Route: 065
  8. HYOSCINE [Concomitant]
     Active Substance: SCOPOLAMINE
     Indication: VOMITING
  9. METOCLOPRAMIDE. [Concomitant]
     Active Substance: METOCLOPRAMIDE
     Indication: DIARRHOEA
     Route: 065
  10. METOCLOPRAMIDE. [Concomitant]
     Active Substance: METOCLOPRAMIDE
     Indication: VOMITING
  11. HYOSCINE [Concomitant]
     Active Substance: SCOPOLAMINE
     Indication: DIARRHOEA
     Route: 065
  12. DEXAMETASONE [Concomitant]
     Active Substance: DEXAMETHASONE
     Indication: BRAIN OEDEMA
     Route: 042

REACTIONS (2)
  - Diarrhoea [Recovered/Resolved]
  - Lung neoplasm malignant [Fatal]
